FAERS Safety Report 11806105 (Version 3)
Quarter: 2015Q4

REPORT INFORMATION
  Report Type: Spontaneous
  Country: US (occurrence: US)
  Receive Date: 20151207
  Receipt Date: 20151221
  Transmission Date: 20160305
  Serious: Yes (Death)
  Sender: FDA-Public Use
  Company Number: US-ACTAVIS-2015-26764

PATIENT
  Age: 42 Year
  Sex: Male
  Weight: 77.6 kg

DRUGS (4)
  1. DILAUDID [Suspect]
     Active Substance: HYDROMORPHONE HYDROCHLORIDE
     Indication: CANCER PAIN
     Dosage: UNK, Q8H
     Route: 048
  2. FENTANYL UNKNOWN STRENGTH (WATSON LABORATORIES) [Suspect]
     Active Substance: FENTANYL
     Indication: ABDOMINAL PAIN
     Dosage: UNK
     Route: 062
  3. DILAUDID [Suspect]
     Active Substance: HYDROMORPHONE HYDROCHLORIDE
     Dosage: 3 MG, TOTAL (DOSES OF 1 MG WERE ADMINISTERED AT 3,7 AND 14H)
     Route: 042
  4. ALPRAZOLAM (AELLC) [Suspect]
     Active Substance: ALPRAZOLAM
     Indication: ANXIETY
     Dosage: 0.25 MG, UNKNOWN
     Route: 048

REACTIONS (5)
  - Overdose [Fatal]
  - Apnoea [Fatal]
  - Cyanosis [Fatal]
  - Intentional product misuse [Fatal]
  - Drug abuse [Fatal]
